FAERS Safety Report 20948933 (Version 1)
Quarter: 2022Q2

REPORT INFORMATION
  Report Type: Spontaneous
  Country: AU (occurrence: AU)
  Receive Date: 20220612
  Receipt Date: 20220612
  Transmission Date: 20220721
  Serious: Yes (Hospitalization, Other)
  Sender: FDA-Public Use
  Company Number: AU-BRISTOL-MYERS SQUIBB COMPANY-2022-020685

PATIENT
  Age: 79 Year
  Sex: Female
  Weight: 60 kg

DRUGS (31)
  1. ELIQUIS [Suspect]
     Active Substance: APIXABAN
     Indication: Cerebrovascular accident prophylaxis
     Route: 048
     Dates: start: 20200805
  2. SYMBICORT [Concomitant]
     Active Substance: BUDESONIDE\FORMOTEROL FUMARATE DIHYDRATE
     Indication: Product used for unknown indication
     Route: 065
  3. RAMIPRIL [Concomitant]
     Active Substance: RAMIPRIL
     Indication: Product used for unknown indication
     Route: 065
  4. CORDILOX [Concomitant]
     Indication: Product used for unknown indication
     Dosage: IN THE MORNING
     Route: 048
  5. FLUTICASONE PROPIONATE\SALMETEROL XINAFOATE [Concomitant]
     Active Substance: FLUTICASONE PROPIONATE\SALMETEROL XINAFOATE
     Indication: Product used for unknown indication
     Dosage: 250 MCG-25 MCG/ACTUATION
     Route: 055
  6. METHYLPREDNISOLONE ACEPONATE [Concomitant]
     Active Substance: METHYLPREDNISOLONE ACEPONATE
     Indication: Product used for unknown indication
     Dosage: APPLY TWICE A DAY FOR 10 DAYS AT A TIME
     Route: 061
  7. RAMIPRIL [Concomitant]
     Active Substance: RAMIPRIL
     Indication: Product used for unknown indication
     Dosage: IN THE MORNING
     Route: 048
  8. BREO ELLIPTA [Concomitant]
     Active Substance: FLUTICASONE FUROATE\VILANTEROL TRIFENATATE
     Indication: Product used for unknown indication
     Dosage: 200 MCG/25 MCG, IN THE MORNING
     Route: 055
  9. CLOBETASONE BUTYRATE [Concomitant]
     Active Substance: CLOBETASONE BUTYRATE
     Indication: Product used for unknown indication
     Dosage: APPLY CREAM TWICE A DAY FOR 6-8 WEEKS, THEN APPLY CREAM TWICE A WEEK
     Route: 061
  10. DIPROSONE [Concomitant]
     Active Substance: BETAMETHASONE DIPROPIONATE
     Indication: Product used for unknown indication
     Route: 061
  11. FERRO GRAD C [Concomitant]
     Indication: Product used for unknown indication
     Dosage: 325 MG/500 MG, AT NIGHT AFTER MEAL
     Route: 048
  12. HIPREX [METHENAMINE HIPPURATE] [Concomitant]
     Indication: Product used for unknown indication
     Route: 048
  13. HERBALS [Concomitant]
     Active Substance: HERBALS
     Indication: Product used for unknown indication
     Dosage: 75 MG-33.33 MG-66.67 MG-33.33 MG-33.33 MG-33.33 MG-16.67 MG-33.33 MG-33.33 MG/ML
     Route: 048
  14. LASIX [Concomitant]
     Active Substance: FUROSEMIDE
     Indication: Product used for unknown indication
     Dosage: IN THE MORNING
     Route: 048
  15. LYRICA [Concomitant]
     Active Substance: PREGABALIN
     Indication: Product used for unknown indication
     Dosage: AT NIGHT
     Route: 048
  16. MAGNESIUM ASPARTATE [Concomitant]
     Active Substance: MAGNESIUM ASPARTATE
     Indication: Product used for unknown indication
     Route: 048
  17. METAMUCIL [Concomitant]
     Active Substance: PLANTAGO SEED
     Indication: Product used for unknown indication
     Dosage: TAKE 1 1/2 TEASPOON POWDER ONCE A DAY IN THE MORNING
     Route: 048
  18. MYLANTA P [Concomitant]
     Indication: Product used for unknown indication
     Dosage: 200 MG-200 MG-20 MG/5 ML
     Route: 048
  19. OSTELIN VITAMIN D3 [Concomitant]
     Indication: Product used for unknown indication
     Route: 048
  20. ACETAMINOPHEN [Concomitant]
     Active Substance: ACETAMINOPHEN
     Indication: Product used for unknown indication
     Dosage: IF REQUIRED
     Route: 048
  21. ESTRIOL [Concomitant]
     Active Substance: ESTRIOL
     Indication: Product used for unknown indication
     Dosage: 0.1 % (1 MG/G) APPLY CREAM ONCE A DAY AT NIGHT
     Route: 067
  22. PROLIA [Concomitant]
     Active Substance: DENOSUMAB
     Indication: Product used for unknown indication
     Dosage: 60 MG/ 1 ML ADMINISTER 1 SYRINGE ONCE EVERY 6 MONTHS
     Route: 058
  23. PANTOPRAZOLE SODIUM [Concomitant]
     Active Substance: PANTOPRAZOLE SODIUM
     Indication: Product used for unknown indication
     Dosage: BEFORE MEALS
     Route: 048
  24. SPIRIVA [Concomitant]
     Active Substance: TIOTROPIUM BROMIDE MONOHYDRATE
     Indication: Product used for unknown indication
     Dosage: IN THE MORNING
     Route: 055
  25. TAMBOCOR [Concomitant]
     Active Substance: FLECAINIDE ACETATE
     Indication: Product used for unknown indication
     Route: 048
  26. VENTOLIN [Concomitant]
     Active Substance: ALBUTEROL SULFATE
     Indication: Product used for unknown indication
     Dosage: 100 MCG/DOSE, TAKE 12 INHALATIONS, 6 TIMES A DAY IF REQUIRED
     Route: 055
  27. VENTOLIN [Concomitant]
     Active Substance: ALBUTEROL SULFATE
     Indication: Product used for unknown indication
     Dosage: 5 MG/2.5 ML, TAKE 1 NEB SOLUTION 6 TIMES A DAY IF REQUIRED
  28. BLACKMORES VITAMIN C [Concomitant]
     Indication: Product used for unknown indication
     Dosage: IN THE MORNING
     Route: 048
  29. ZOCOR [Concomitant]
     Active Substance: SIMVASTATIN
     Indication: Product used for unknown indication
     Dosage: AT NIGHT
     Route: 048
  30. COMIRNATY [Concomitant]
     Active Substance: TOZINAMERAN
     Indication: Product used for unknown indication
     Dosage: 1ST DOSE
     Dates: start: 20210910
  31. COMIRNATY [Concomitant]
     Active Substance: TOZINAMERAN
     Dosage: 3RD DOSE
     Dates: start: 20220214

REACTIONS (8)
  - Bronchospasm [Unknown]
  - Muscle spasms [Unknown]
  - Atrial fibrillation [Not Recovered/Not Resolved]
  - Lichen sclerosus [Not Recovered/Not Resolved]
  - COVID-19 [Not Recovered/Not Resolved]
  - Rotator cuff syndrome [Not Recovered/Not Resolved]
  - Large intestine polyp [Not Recovered/Not Resolved]
  - Hospitalisation [Recovered/Resolved]

NARRATIVE: CASE EVENT DATE: 20200101
